FAERS Safety Report 8563866-X (Version None)
Quarter: 2012Q3

REPORT INFORMATION
  Report Type: 
  Country: None (occurrence: None)
  Receive Date: 20120727
  Receipt Date: 20120727
  Transmission Date: 20120928
  Serious: Yes (Hospitalization)
  Sender: FDA-Public Use
  Company Number: None

PATIENT
  Age: 22 Year
  Sex: Male
  Weight: 56.246 kg

DRUGS (2)
  1. ASACOL [Suspect]
     Indication: COLITIS ULCERATIVE
     Dosage: 2 TABLETS 3 TIMES A DAY PO
     Route: 048
     Dates: start: 20120622, end: 20120711
  2. PERRIGO 4 G PERRIGO [Suspect]
     Indication: COLITIS ULCERATIVE
     Dosage: 4 GRAMS ONCE A DAY RECTAL
     Route: 054
     Dates: start: 20120622, end: 20120708

REACTIONS (2)
  - PERICARDITIS [None]
  - ATRIAL FLUTTER [None]
